FAERS Safety Report 18901160 (Version 1)
Quarter: 2021Q1

REPORT INFORMATION
  Report Type: Spontaneous
  Country: US (occurrence: US)
  Receive Date: 20210216
  Receipt Date: 20210216
  Transmission Date: 20210420
  Serious: No
  Sender: FDA-Public Use
  Company Number: US-PFIZER INC-2021111904

PATIENT
  Age: 56 Year
  Sex: Female

DRUGS (1)
  1. DEPO?ESTRADIOL [Suspect]
     Active Substance: ESTRADIOL CYPIONATE
     Indication: MENOPAUSAL SYMPTOMS
     Dosage: UNK

REACTIONS (9)
  - Confusional state [Unknown]
  - Intentional product misuse [Unknown]
  - Alopecia [Unknown]
  - Vulvovaginal discomfort [Unknown]
  - Urinary tract infection [Unknown]
  - Depressed mood [Unknown]
  - Emotional disorder [Unknown]
  - Malaise [Unknown]
  - Weight increased [Unknown]
